FAERS Safety Report 6749352-8 (Version None)
Quarter: 2010Q2

REPORT INFORMATION
  Report Type: 
  Country: None (occurrence: None)
  Receive Date: 20100601
  Receipt Date: 20100525
  Transmission Date: 20101027
  Serious: Yes (Hospitalization)
  Sender: FDA-Public Use
  Company Number: US-SANOFI-AVENTIS-2010SA012418

PATIENT
  Age: 66 Year
  Sex: Male
  Weight: 159.1 kg

DRUGS (20)
  1. PLAVIX [Suspect]
     Route: 048
     Dates: start: 20060519
  2. PLAVIX [Suspect]
     Indication: STENT PLACEMENT
     Route: 048
     Dates: start: 20060519
  3. PLAVIX [Suspect]
     Indication: CORONARY ARTERY DISEASE
     Route: 048
     Dates: start: 20060519
  4. OMEPRAZOLE [Suspect]
     Dosage: ALTERNATING OCCASIONALLY WITH PROTONIX
     Route: 065
     Dates: start: 20091221
  5. PROTONIX [Concomitant]
     Route: 065
     Dates: start: 20080407
  6. TOPROL-XL [Concomitant]
     Route: 048
  7. ASPIRIN [Concomitant]
     Route: 048
  8. VYTORIN [Concomitant]
     Route: 065
  9. AVODART [Concomitant]
     Route: 048
  10. FLOMAX [Concomitant]
     Route: 048
  11. IMDUR [Concomitant]
     Route: 048
  12. LISINOPRIL [Concomitant]
     Route: 048
  13. LASIX [Concomitant]
     Route: 048
  14. MOBIC [Concomitant]
     Route: 048
  15. POTASSIUM CHLORIDE [Concomitant]
     Route: 048
  16. AMIODARONE HYDROCHLORIDE [Concomitant]
     Route: 048
  17. METFORMIN HCL [Concomitant]
     Route: 048
  18. LYRICA [Concomitant]
     Dosage: 50 UP TO TID
     Route: 065
  19. HYDROCODONE [Concomitant]
     Dosage: UP TO BID
  20. NEXIUM /UNK/ [Concomitant]
     Dates: end: 20080401

REACTIONS (5)
  - ATRIAL FIBRILLATION [None]
  - CORONARY ARTERY OCCLUSION [None]
  - DRUG INTERACTION [None]
  - MYOCARDIAL INFARCTION [None]
  - STAPHYLOCOCCAL SEPSIS [None]
